FAERS Safety Report 8599132 (Version 2)
Quarter: 2013Q2

REPORT INFORMATION
  Report Type: Spontaneous
  Country: US (occurrence: US)
  Receive Date: 20120605
  Receipt Date: 20130617
  Transmission Date: 20140414
  Serious: Yes (Hospitalization, Disabling)
  Sender: FDA-Public Use
  Company Number: US-ASTRAZENECA-2012SE34623

PATIENT
  Age: 47 Year
  Sex: Female

DRUGS (12)
  1. NEXIUM [Suspect]
     Indication: GASTROOESOPHAGEAL REFLUX DISEASE
     Dosage: 40 MG ONE TO TWO TIMES DAILY
     Route: 048
     Dates: start: 2005
  2. NEXIUM [Suspect]
     Indication: GASTROOESOPHAGEAL REFLUX DISEASE
     Route: 048
     Dates: start: 20120822
  3. PRILOSEC [Suspect]
     Indication: GASTROOESOPHAGEAL REFLUX DISEASE
     Route: 048
  4. PREVACID OTC [Concomitant]
  5. TUMS [Concomitant]
  6. TYNEOL [Concomitant]
  7. ZOCOR [Concomitant]
     Route: 048
     Dates: start: 20130110
  8. BYSTOLIC [Concomitant]
     Route: 048
     Dates: start: 20130110
  9. CYMBALTA [Concomitant]
     Route: 048
     Dates: start: 20130110
  10. NORVASC [Concomitant]
     Route: 048
     Dates: start: 20130110
  11. BACLOFEN [Concomitant]
     Route: 048
     Dates: start: 20130110
  12. MOBIC [Concomitant]
     Route: 048
     Dates: start: 20130110

REACTIONS (12)
  - Fibromyalgia [Unknown]
  - Spinal osteoarthritis [Unknown]
  - Pneumonia [Unknown]
  - Osteoporosis [Unknown]
  - Multiple fractures [Unknown]
  - Carpal tunnel syndrome [Unknown]
  - Tendonitis [Unknown]
  - Arthritis [Unknown]
  - Bone disorder [Unknown]
  - Chronic obstructive pulmonary disease [Unknown]
  - Vitamin D deficiency [Unknown]
  - Depression [Unknown]
